FAERS Safety Report 6301383-8 (Version None)
Quarter: 2009Q3

REPORT INFORMATION
  Report Type: 
  Country: None (occurrence: None)
  Receive Date: 20090807
  Receipt Date: 20090805
  Transmission Date: 20100115
  Serious: Yes (Life-Threatening, Hospitalization)
  Sender: FDA-Public Use
  Company Number: FR-WYE-G04187909

PATIENT
  Age: 76 Year
  Sex: Female

DRUGS (10)
  1. ADVIL [Suspect]
     Dosage: UNKNOWN
     Route: 048
  2. FUROSEMIDE [Suspect]
     Dosage: UNKNOWN
     Route: 048
  3. PRITOR [Suspect]
     Dosage: UNKNOWN
     Route: 048
  4. CHELIDONIUM [Concomitant]
     Dosage: UNKNOWN
  5. VASTAREL [Concomitant]
     Dosage: UNKNOWN
     Route: 048
  6. AMAREL [Concomitant]
     Dosage: UNKNOWN
     Route: 048
  7. MOGADON [Concomitant]
     Dosage: UNKNOWN
     Route: 048
  8. POLERY [Concomitant]
     Dosage: UNKNOWN
     Route: 048
  9. GLUCOPHAGE [Suspect]
     Dosage: 3000 MG TOTAL DAILY
     Route: 048
     Dates: end: 20090601
  10. GLUCOR [Concomitant]
     Dosage: UNKNOWN
     Route: 048

REACTIONS (7)
  - ACUTE PRERENAL FAILURE [None]
  - DIALYSIS [None]
  - DIARRHOEA [None]
  - DRUG TOXICITY [None]
  - GASTROINTESTINAL DISORDER [None]
  - GENERAL PHYSICAL HEALTH DETERIORATION [None]
  - LACTIC ACIDOSIS [None]
